FAERS Safety Report 9253980 (Version 1)
Quarter: 2013Q1

REPORT INFORMATION
  Report Type: Spontaneous
  Country: US (occurrence: None)
  Receive Date: 20121203
  Receipt Date: 20121203
  Transmission Date: 20140127
  Serious: Yes (Other)
  Sender: FDA-Public Use
  Company Number: 1208USA007434

PATIENT
  Sex: Female

DRUGS (1)
  1. NUVARING [Suspect]
     Dosage: UNK , VAGINAL
     Route: 067
     Dates: start: 201003, end: 201009

REACTIONS (1)
  - Pulmonary embolism [None]
